FAERS Safety Report 15753701 (Version 3)
Quarter: 2019Q1

REPORT INFORMATION
  Report Type: Other
  Country: DE (occurrence: DE)
  Receive Date: 20181222
  Receipt Date: 20190130
  Transmission Date: 20190417
  Serious: Yes (Hospitalization)
  Sender: FDA-Public Use
  Company Number: DE-ACCORD-096803

PATIENT
  Age: 0 Week
  Sex: Female
  Weight: 3.9 kg

DRUGS (1)
  1. QUETIAPINE. [Suspect]
     Active Substance: QUETIAPINE
     Indication: PRODUCT USED FOR UNKNOWN INDICATION
     Dosage: DAILY DOSE: 300 MG MILLIGRAM(S) EVERY DAY
     Route: 064

REACTIONS (2)
  - Foetal exposure during pregnancy [Unknown]
  - Neonatal disorder [Unknown]
